FAERS Safety Report 6207454-9 (Version None)
Quarter: 2009Q2

REPORT INFORMATION
  Report Type: 
  Country: None (occurrence: None)
  Receive Date: 20090528
  Receipt Date: 20090515
  Transmission Date: 20091009
  Serious: Yes (Death)
  Sender: FDA-Public Use
  Company Number: US-TYCO HEALTHCARE/MALLINCKRODT-T200901055

PATIENT
  Sex: Male

DRUGS (2)
  1. TRAMADOL HCL [Suspect]
  2. METHADOSE [Interacting]

REACTIONS (2)
  - DRUG DISPENSING ERROR [None]
  - DRUG INTERACTION [None]
